FAERS Safety Report 12811230 (Version 1)
Quarter: 2016Q4

REPORT INFORMATION
  Report Type: Spontaneous
  Country: US (occurrence: US)
  Receive Date: 20161005
  Receipt Date: 20161005
  Transmission Date: 20170207
  Serious: No
  Sender: FDA-Public Use
  Company Number: US-TEVA-691953ACC

PATIENT
  Age: 18 Year
  Sex: Female
  Weight: 63.56 kg

DRUGS (1)
  1. TAKE ACTION [Suspect]
     Active Substance: LEVONORGESTREL
     Indication: POST COITAL CONTRACEPTION
     Dates: start: 20160820, end: 20160820

REACTIONS (10)
  - Feeling abnormal [Unknown]
  - Constipation [Recovered/Resolved]
  - Menstruation irregular [Recovered/Resolved]
  - Diarrhoea [Unknown]
  - Disturbance in attention [Not Recovered/Not Resolved]
  - Nausea [Unknown]
  - Hormone level abnormal [Not Recovered/Not Resolved]
  - Crying [Not Recovered/Not Resolved]
  - Breast tenderness [Not Recovered/Not Resolved]
  - Dysmenorrhoea [Not Recovered/Not Resolved]

NARRATIVE: CASE EVENT DATE: 20160820
